FAERS Safety Report 11655570 (Version 2)
Quarter: 2015Q4

REPORT INFORMATION
  Report Type: Report from Study
  Country: CO (occurrence: CO)
  Receive Date: 20151023
  Receipt Date: 20151204
  Transmission Date: 20160304
  Serious: Yes (Death)
  Sender: FDA-Public Use
  Company Number: CO-ASTRAZENECA-2015SF01730

PATIENT
  Age: 27708 Day
  Sex: Male

DRUGS (4)
  1. AMLODIPIN [Concomitant]
     Active Substance: AMLODIPINE BESYLATE
  2. LOSARTAN. [Concomitant]
     Active Substance: LOSARTAN
  3. BRILINTA [Suspect]
     Active Substance: TICAGRELOR
     Route: 048
     Dates: start: 20151005
  4. ASA [Concomitant]
     Active Substance: ASPIRIN

REACTIONS (1)
  - Infarction [Fatal]

NARRATIVE: CASE EVENT DATE: 20151008
